FAERS Safety Report 7383394-7 (Version None)
Quarter: 2011Q1

REPORT INFORMATION
  Report Type: 
  Country: None (occurrence: None)
  Receive Date: 20110330
  Receipt Date: 20100909
  Transmission Date: 20110831
  Serious: Yes (Hospitalization, Other)
  Sender: FDA-Public Use
  Company Number: US-BAYER-200942382NA

PATIENT
  Sex: Female
  Weight: 75.283 kg

DRUGS (12)
  1. XOPENEX [Concomitant]
     Indication: ASTHMA
     Dosage: UNK
     Dates: start: 20050819
  2. DOXEPIN [Concomitant]
     Dosage: 50 MG, UNK
     Dates: start: 20080401
  3. YASMIN [Suspect]
     Indication: CONTRACEPTION
     Dosage: UNK
     Dates: start: 20080227, end: 20090201
  4. ACYCLOVIR [Concomitant]
     Dosage: 800 MG, PRN
  5. SINGULAIR [Concomitant]
     Indication: ASTHMA
     Dosage: 10 MG, UNK
  6. CYMBALTA [Concomitant]
     Dosage: 60 MG, UNK
  7. BUPROPION HYDROCHLORIDE [Concomitant]
     Dosage: 150 MG, UNK
  8. YASMIN [Suspect]
     Indication: ACNE
     Dosage: UNK
     Dates: start: 20090401, end: 20090901
  9. IBUPROFEN [Concomitant]
     Dosage: UNK UNK, PRN
  10. OCELLA [Suspect]
     Indication: CONTRACEPTION
     Dosage: UNK
     Dates: start: 20090201, end: 20090301
  11. OCELLA [Suspect]
     Indication: ACNE
  12. FEXOFENADINE [Concomitant]
     Indication: MULTIPLE ALLERGIES
     Dosage: 180 MG, UNK
     Dates: start: 20090801, end: 20090901

REACTIONS (9)
  - ABDOMINAL PAIN UPPER [None]
  - NAUSEA [None]
  - DYSPEPSIA [None]
  - VOMITING [None]
  - PAIN [None]
  - CHOLELITHIASIS [None]
  - GALLBLADDER DISORDER [None]
  - GASTROOESOPHAGEAL REFLUX DISEASE [None]
  - CHOLECYSTITIS CHRONIC [None]
